FAERS Safety Report 8682429 (Version 5)
Quarter: 2012Q4

REPORT INFORMATION
  Report Type: 
  Country: US (occurrence: US)
  Receive Date: 20120725
  Receipt Date: 20120911
  Transmission Date: 20130627
  Serious: No
  Sender: FDA-Public Use
  Company Number: US-PFIZER INC-2012174618

PATIENT
  Age: 47 Year
  Sex: Male
  Weight: 141 kg

DRUGS (3)
  1. VIAGRA [Suspect]
     Indication: ERECTILE DYSFUNCTION
     Dosage: 75 mg, as needed
     Route: 048
     Dates: start: 201206, end: 2012
  2. VISTARIL [Suspect]
     Dosage: 100 mg, UNK
     Dates: start: 20120718, end: 20120718
  3. VISTARIL [Suspect]
     Dosage: 50 mg, UNK

REACTIONS (6)
  - Intercepted drug dispensing error [Unknown]
  - Abdominal discomfort [Unknown]
  - Somnolence [Unknown]
  - Dizziness [Unknown]
  - Malaise [Unknown]
  - Pain [Unknown]
